FAERS Safety Report 6893116-1 (Version None)
Quarter: 2010Q3

REPORT INFORMATION
  Report Type: 
  Country: None (occurrence: None)
  Receive Date: 20100731
  Receipt Date: 20090520
  Transmission Date: 20110219
  Serious: No
  Sender: FDA-Public Use
  Company Number: US-PFIZER INC-2009211072

PATIENT
  Sex: Male
  Weight: 106 kg

DRUGS (9)
  1. GABAPENTIN [Suspect]
     Indication: DIABETIC NEUROPATHY
     Dosage: UNK
     Dates: start: 20081001
  2. VALSARTAN [Concomitant]
     Dosage: UNK
  3. ALTACE [Concomitant]
     Dosage: UNK
  4. DIGOXIN [Concomitant]
     Dosage: UNK
  5. WARFARIN SODIUM [Concomitant]
     Dosage: UNK
  6. PERCOCET [Concomitant]
     Dosage: UNK
  7. ALLOPURINOL [Concomitant]
     Dosage: UNK
  8. ACTOS [Concomitant]
     Dosage: UNK
  9. GABAPENTIN [Concomitant]
     Dosage: UNK

REACTIONS (1)
  - ANAEMIA [None]
